FAERS Safety Report 14085572 (Version 1)
Quarter: 2017Q4

REPORT INFORMATION
  Report Type: Spontaneous
  Country: FR (occurrence: FR)
  Receive Date: 20171013
  Receipt Date: 20171013
  Transmission Date: 20180321
  Serious: Yes (Other)
  Sender: FDA-Public Use
  Company Number: FR-MERCK KGAA-2029909

PATIENT
  Age: 88 Year
  Sex: Female

DRUGS (3)
  1. NOVOTHYROX [Suspect]
     Active Substance: LEVOTHYROXINE SODIUM
     Indication: PRODUCT USED FOR UNKNOWN INDICATION
     Route: 048
     Dates: start: 20170907
  2. PREVISCAN (FLUINDIONE) [Suspect]
     Active Substance: FLUINDIONE
  3. DIAMICRON [Suspect]
     Active Substance: GLICLAZIDE

REACTIONS (7)
  - Blood thyroid stimulating hormone increased [None]
  - Feeling cold [None]
  - Fatigue [None]
  - Palpitations [None]
  - Diabetes mellitus [None]
  - Dizziness [None]
  - Muscle spasms [None]

NARRATIVE: CASE EVENT DATE: 201709
